FAERS Safety Report 6619734-3 (Version None)
Quarter: 2010Q1

REPORT INFORMATION
  Report Type: 
  Country: None (occurrence: None)
  Receive Date: 20100309
  Receipt Date: 20100224
  Transmission Date: 20100710
  Serious: Yes (Other)
  Sender: FDA-Public Use
  Company Number: PHHY2010DE11156

PATIENT
  Sex: Female

DRUGS (1)
  1. IMMUNOSPORIN [Suspect]
     Dosage: 5 MG/KG/DAY
     Route: 048
     Dates: start: 20091101, end: 20100101

REACTIONS (4)
  - AMENORRHOEA [None]
  - ANGIOEDEMA [None]
  - CYSTITIS [None]
  - URTICARIA [None]
